FAERS Safety Report 5504327-1 (Version None)
Quarter: 2007Q4

REPORT INFORMATION
  Report Type: 
  Country: None (occurrence: None)
  Receive Date: 20071030
  Receipt Date: 20070912
  Transmission Date: 20080405
  Serious: No
  Sender: FDA-Public Use
  Company Number: 267561

PATIENT
  Age: 47 Year
  Sex: Female

DRUGS (2)
  1. LEVEMIR [Suspect]
     Indication: TYPE 2 DIABETES MELLITUS
     Dosage: 40 LU,SUBCUTANEOUS
     Route: 058
  2. GLUCOPHAGE [Concomitant]

REACTIONS (2)
  - PARAESTHESIA [None]
  - PRURITUS [None]
